FAERS Safety Report 16559977 (Version 1)
Quarter: 2019Q3

REPORT INFORMATION
  Report Type: Spontaneous
  Country: US (occurrence: US)
  Receive Date: 20190711
  Receipt Date: 20190711
  Transmission Date: 20191004
  Serious: No
  Sender: FDA-Public Use
  Company Number: US-GLAXOSMITHKLINE-US2019123777

PATIENT
  Sex: Female

DRUGS (2)
  1. LAMOTRIGINE ORODISPERSIBLE TABLET [Suspect]
     Active Substance: LAMOTRIGINE
     Indication: SEIZURE
     Dosage: UNK UNK, BID
     Route: 048
  2. LAMOTRIGINE PROLONGED-RELEASE TABLET [Concomitant]
     Active Substance: LAMOTRIGINE
     Indication: SEIZURE
     Dosage: UNK UNK, 1D
     Route: 048

REACTIONS (1)
  - Drug ineffective [Unknown]
